FAERS Safety Report 16276923 (Version 3)
Quarter: 2021Q3

REPORT INFORMATION
  Report Type: Spontaneous
  Country: US (occurrence: US)
  Receive Date: 20190506
  Receipt Date: 20210810
  Transmission Date: 20211014
  Serious: No
  Sender: FDA-Public Use
  Company Number: US-PFIZER INC-2019189270

PATIENT
  Age: 71 Year
  Sex: Female

DRUGS (17)
  1. TAXOTERE [Suspect]
     Active Substance: DOCETAXEL
     Indication: BREAST CANCER FEMALE
     Dosage: 60 MG/M2, CYCLIC (EVERY THREE WEEKS FOR 04 CYCLES)
     Dates: start: 20140418, end: 20140623
  2. CYTOXAN [Concomitant]
     Active Substance: CYCLOPHOSPHAMIDE
     Indication: CHEMOTHERAPY
     Dosage: UNK
  3. DOCETAXEL TEVA [Suspect]
     Active Substance: DOCETAXEL
     Indication: BREAST CANCER FEMALE
     Dosage: 60 MG/M2, CYCLIC (EVERY THREE WEEKS FOR 04 CYCLES)
     Dates: start: 20140418, end: 20140623
  4. DOCETAXEL NORTHSTAR [Suspect]
     Active Substance: DOCETAXEL
     Indication: BREAST CANCER FEMALE
     Dosage: 60 MG/M2, CYCLIC (EVERY THREE WEEKS FOR 04 CYCLES)
     Dates: start: 20140418, end: 20140623
  5. PROZAC [Concomitant]
     Active Substance: FLUOXETINE HYDROCHLORIDE
     Dosage: UNK
  6. ARIMIDEX [Concomitant]
     Active Substance: ANASTROZOLE
     Indication: HORMONE THERAPY
     Dosage: UNK
     Dates: start: 20140718
  7. DOCETAXEL SANDOZ [Suspect]
     Active Substance: DOCETAXEL
     Indication: BREAST CANCER FEMALE
     Dosage: 60 MG/M2, CYCLIC (EVERY THREE WEEKS FOR 04 CYCLES)
     Dates: start: 20140418, end: 20140623
  8. DOCETAXEL ACCORD [Suspect]
     Active Substance: DOCETAXEL
     Indication: BREAST CANCER FEMALE
     Dosage: 60 MG/M2, CYCLIC (EVERY THREE WEEKS FOR 04 CYCLES)
     Dates: start: 20140418, end: 20140623
  9. DOCEFREZ [Suspect]
     Active Substance: DOCETAXEL ANHYDROUS
     Indication: BREAST CANCER FEMALE
     Dosage: 60 MG/M2, CYCLIC (EVERY THREE WEEKS FOR 04 CYCLES)
     Dates: start: 20140418, end: 20140623
  10. DOCETAXEL EAGLE [Suspect]
     Active Substance: DOCETAXEL
     Indication: BREAST CANCER FEMALE
     Dosage: 60 MG/M2, CYCLIC (EVERY THREE WEEKS FOR 04 CYCLES)
     Dates: start: 20140418, end: 20140623
  11. DOCETAXEL SAGENT [Suspect]
     Active Substance: DOCETAXEL
     Indication: BREAST CANCER FEMALE
     Dosage: 60 MG/M2, CYCLIC (EVERY THREE WEEKS FOR 04 CYCLES)
     Dates: start: 20140418, end: 20140623
  12. DOCETAXEL SANOFI [Suspect]
     Active Substance: DOCETAXEL
     Indication: BREAST CANCER FEMALE
     Dosage: 60 MG/M2, CYCLIC (EVERY THREE WEEKS FOR 04 CYCLES)
     Dates: start: 20140418, end: 20140623
  13. DOCETAXEL DR.REDDY^S [Suspect]
     Active Substance: DOCETAXEL
     Indication: BREAST CANCER FEMALE
     Dosage: 60 MG/M2, CYCLIC (EVERY THREE WEEKS FOR 04 CYCLES)
     Dates: start: 20140418, end: 20140623
  14. NEOSAR [Concomitant]
     Active Substance: CYCLOPHOSPHAMIDE
     Indication: CHEMOTHERAPY
     Dosage: UNK
  15. DOCETAXEL. [Suspect]
     Active Substance: DOCETAXEL
     Indication: BREAST CANCER FEMALE
     Dosage: 60 MG/M2, CYCLIC (EVERY THREE WEEKS FOR 04 CYCLES)
     Dates: start: 20140418, end: 20140623
  16. DOCETAXEL. [Suspect]
     Active Substance: DOCETAXEL
     Dosage: UNK
     Dates: start: 20140418, end: 20140623
  17. DOCETAXEL ACTAVIS [Suspect]
     Active Substance: DOCETAXEL
     Indication: BREAST CANCER FEMALE
     Dosage: 60 MG/M2, CYCLIC (EVERY THREE WEEKS FOR 04 CYCLES)
     Dates: start: 20140418, end: 20140623

REACTIONS (5)
  - Hair disorder [Not Recovered/Not Resolved]
  - Alopecia [Not Recovered/Not Resolved]
  - Hair texture abnormal [Not Recovered/Not Resolved]
  - Madarosis [Not Recovered/Not Resolved]
  - Hair colour changes [Not Recovered/Not Resolved]

NARRATIVE: CASE EVENT DATE: 20141101
